FAERS Safety Report 18180207 (Version 1)
Quarter: 2020Q3

REPORT INFORMATION
  Report Type: Spontaneous
  Country: US (occurrence: US)
  Receive Date: 20200820
  Receipt Date: 20200820
  Transmission Date: 20201103
  Serious: No
  Sender: FDA-Public Use
  Company Number: None

PATIENT
  Age: 61 Year
  Sex: Female

DRUGS (1)
  1. HUMIRA [Suspect]
     Active Substance: ADALIMUMAB
     Indication: IRIDOCYCLITIS
     Dosage: ?          OTHER DOSE:40MG/0.4ML;?
     Route: 058
     Dates: end: 20200820

REACTIONS (2)
  - Injection site rash [None]
  - Therapy cessation [None]

NARRATIVE: CASE EVENT DATE: 20200630
